FAERS Safety Report 5198466-5 (Version None)
Quarter: 2006Q4

REPORT INFORMATION
  Report Type: 
  Country: None (occurrence: None)
  Receive Date: 20061229
  Receipt Date: 20061219
  Transmission Date: 20070319
  Serious: Yes (Other)
  Sender: FDA-Public Use
  Company Number: 2006PV023715

PATIENT
  Age: 54 Year
  Sex: Male
  Weight: 126.5536 kg

DRUGS (12)
  1. SYMLIN [Suspect]
     Dosage: 72 MCG;BID;SC; SEE IMAGE
     Route: 058
     Dates: start: 20050801, end: 20050101
  2. SYMLIN [Suspect]
     Dosage: 72 MCG;BID;SC; SEE IMAGE
     Route: 058
     Dates: start: 20050901, end: 20050101
  3. SYMLIN [Suspect]
     Dosage: 72 MCG;BID;SC; SEE IMAGE
     Route: 058
     Dates: start: 20050101, end: 20050901
  4. SYMLIN [Suspect]
     Dosage: 72 MCG;BID;SC; SEE IMAGE
     Route: 058
     Dates: start: 20051024, end: 20051101
  5. SYMLIN [Suspect]
     Dosage: 72 MCG;BID;SC; SEE IMAGE
     Route: 058
     Dates: start: 20060401, end: 20060101
  6. SYMLIN [Suspect]
     Dosage: 72 MCG;BID;SC; SEE IMAGE
     Route: 058
     Dates: start: 20060201, end: 20060401
  7. SYMLIN [Suspect]
     Dosage: 72 MCG;BID;SC; SEE IMAGE
     Route: 058
     Dates: start: 20051101
  8. NEURONTIN [Suspect]
     Indication: NEURALGIA
     Dosage: 800 MG;TID;PO
     Route: 048
     Dates: start: 20000101, end: 20060101
  9. TOPAMAX [Suspect]
     Indication: NEURALGIA
     Dosage: 125 MG;QD;PO
     Route: 048
     Dates: start: 20060301, end: 20060101
  10. LYRICA [Suspect]
     Indication: NEURALGIA
     Dosage: 150 MG;QD;PO
     Route: 048
     Dates: start: 20060701, end: 20060705
  11. HUMALOG [Concomitant]
  12. HUMULIN N [Concomitant]

REACTIONS (14)
  - ABDOMINAL DISTENSION [None]
  - BLINDNESS TRANSIENT [None]
  - BLOOD GLUCOSE DECREASED [None]
  - BLOOD GLUCOSE INCREASED [None]
  - DIZZINESS [None]
  - DYSPEPSIA [None]
  - DYSPHAGIA [None]
  - EYE HAEMORRHAGE [None]
  - NAUSEA [None]
  - RETINAL DISORDER [None]
  - SCAR [None]
  - VISUAL ACUITY REDUCED [None]
  - VITREOUS DISORDER [None]
  - WEIGHT DECREASED [None]
